FAERS Safety Report 7581121-1 (Version None)
Quarter: 2011Q2

REPORT INFORMATION
  Report Type: 
  Country: None (occurrence: None)
  Receive Date: 20110629
  Receipt Date: 20110616
  Transmission Date: 20111010
  Serious: Yes (Other)
  Sender: FDA-Public Use
  Company Number: IT-JNJFOC-20110608220

PATIENT
  Age: 74 Year
  Sex: Male

DRUGS (3)
  1. INFLIXIMAB, RECOMBINANT [Suspect]
     Indication: CROHN'S DISEASE
     Dosage: 5 MG/WEIGHT; 2ND INFUSION
     Route: 042
  2. MESALAZINE [Concomitant]
  3. PREDNISONE [Concomitant]

REACTIONS (2)
  - ENCEPHALOPATHY [None]
  - CONVULSION [None]
